FAERS Safety Report 20072228 (Version 3)
Quarter: 2022Q1

REPORT INFORMATION
  Report Type: Spontaneous
  Country: AU (occurrence: AU)
  Receive Date: 20211116
  Receipt Date: 20220210
  Transmission Date: 20220423
  Serious: Yes (Hospitalization, Other)
  Sender: FDA-Public Use
  Company Number: AU-NOVOPROD-865431

PATIENT
  Age: 69 Year
  Sex: Female
  Weight: 140 kg

DRUGS (8)
  1. OZEMPIC [Suspect]
     Active Substance: SEMAGLUTIDE
     Dosage: UNK
     Route: 065
  2. OZEMPIC [Suspect]
     Active Substance: SEMAGLUTIDE
     Indication: Weight control
     Dosage: 0.25 MG
     Route: 065
     Dates: start: 20210917
  3. OZEMPIC [Suspect]
     Active Substance: SEMAGLUTIDE
     Dosage: 0.5 MG
     Route: 065
     Dates: end: 20211029
  4. DURIDE [AMILORIDE HYDROCHLORIDE;FUROSEMIDE] [Concomitant]
     Indication: Angina pectoris
     Dosage: 30 MG, QD
     Route: 048
     Dates: start: 2016
  5. ATENOLOL [Concomitant]
     Active Substance: ATENOLOL
     Indication: Hypertension
     Dosage: 25 MG, QD
     Route: 048
     Dates: start: 2013
  6. RAMIPRIL [Concomitant]
     Active Substance: RAMIPRIL
     Indication: Hypertension
     Dosage: 5 MG, QD
     Route: 048
     Dates: start: 1982
  7. RYZODEG 70/30 [Concomitant]
     Active Substance: INSULIN ASPART\INSULIN DEGLUDEC
     Indication: Diabetes mellitus
     Dosage: DAILY DOSE: 15 X 2, ROUTE: INJECTION
     Route: 065
     Dates: start: 2020
  8. FRUSEMID [FUROSEMIDE] [Concomitant]
     Indication: Fluid retention
     Dosage: 20 MG, QD
     Route: 048
     Dates: start: 2020, end: 20211102

REACTIONS (2)
  - Ileus paralytic [Recovered/Resolved]
  - Off label use [Recovered/Resolved]

NARRATIVE: CASE EVENT DATE: 20210917
